FAERS Safety Report 22085073 (Version 1)
Quarter: 2023Q1

REPORT INFORMATION
  Report Type: Spontaneous
  Country: US (occurrence: US)
  Receive Date: 20230310
  Receipt Date: 20230310
  Transmission Date: 20230417
  Serious: No
  Sender: FDA-Public Use
  Company Number: US-drreddys-SPO/USA/23/0160696

PATIENT
  Age: 33 Year
  Sex: Female

DRUGS (1)
  1. ACCUTANE [Suspect]
     Active Substance: ISOTRETINOIN
     Indication: Product used for unknown indication
     Dosage: RMA ISSUE DATE: 28 NOVEMBER 2022 04:22:35 PM, 29 DECEMBER 2022 03:01:57 PM.

REACTIONS (1)
  - Blood triglycerides abnormal [Unknown]
